FAERS Safety Report 17285033 (Version 5)
Quarter: 2020Q3

REPORT INFORMATION
  Report Type: Report from Study
  Country: FR (occurrence: FR)
  Receive Date: 20200117
  Receipt Date: 20200508
  Transmission Date: 20201104
  Serious: Yes (Hospitalization)
  Sender: FDA-Public Use
  Company Number: FR-JNJFOC-20191125249

PATIENT
  Age: 65 Year
  Sex: Male
  Weight: 79 kg

DRUGS (9)
  1. LENALIDOMIDE [Suspect]
     Active Substance: LENALIDOMIDE
     Dosage: CYCLE 2 (1)
     Route: 048
     Dates: start: 20191125
  2. DEXAMETHASONE. [Suspect]
     Active Substance: DEXAMETHASONE
     Route: 048
     Dates: start: 20191025
  3. XANAX [Concomitant]
     Active Substance: ALPRAZOLAM
     Indication: PROPHYLAXIS
     Route: 048
     Dates: start: 20191209
  4. DEXAMETHASONE. [Suspect]
     Active Substance: DEXAMETHASONE
     Indication: PLASMA CELL MYELOMA
     Dosage: MOST RECENT DOSE ON 09?DEC?2019
     Route: 048
     Dates: start: 20191025
  5. LENALIDOMIDE [Suspect]
     Active Substance: LENALIDOMIDE
     Indication: PLASMA CELL MYELOMA
     Dosage: MOST RECENT DOSE ON 09?DEC?2019 (ALSO REPORTED AS 08?DEC?2019)
     Route: 048
     Dates: start: 20191025
  6. VELCADE [Suspect]
     Active Substance: BORTEZOMIB
     Indication: PLASMA CELL MYELOMA
     Dosage: 1.3 MG/M2; MOST RECENT DOSE ON 05?DEC?2019?MED KIT NUMBER: BE19800203
     Route: 058
     Dates: start: 20191025
  7. VELCADE [Suspect]
     Active Substance: BORTEZOMIB
     Dosage: CYCLE 2 DAY 1?MOST RECENT DOSE 05?DEC?2019
     Route: 058
     Dates: start: 20191125
  8. DARATUMUMAB [Suspect]
     Active Substance: DARATUMUMAB
     Indication: PLASMA CELL MYELOMA
     Dosage: MOST RECENT DOSE ON 09?DEC?2019?MED KIT NUMBER BE18801016
     Route: 058
     Dates: start: 20191025
  9. OXYCODONE [Concomitant]
     Active Substance: OXYCODONE
     Indication: BACK PAIN
     Dosage: DOSE = 10 UNITS OTHER, FREQUENCY = OTHER
     Route: 042
     Dates: start: 20191210, end: 20191227

REACTIONS (3)
  - Back pain [Recovered/Resolved]
  - Mucormycosis [Recovered/Resolved]
  - Constipation [Recovered/Resolved]

NARRATIVE: CASE EVENT DATE: 20191111
